FAERS Safety Report 8340410-3 (Version None)
Quarter: 2012Q2

REPORT INFORMATION
  Report Type: 
  Country: None (occurrence: None)
  Receive Date: 20120507
  Receipt Date: 20120507
  Transmission Date: 20120825
  Serious: No
  Sender: FDA-Public Use
  Company Number: None

PATIENT
  Age: 68 Year
  Sex: Female
  Weight: 76.203 kg

DRUGS (3)
  1. CELEBREX [Suspect]
     Indication: SJOGREN'S SYNDROME
     Dosage: |STRENGTH: 200 MG CAPSULE||FREQ: DAILY||ROUTE: ORAL|
     Route: 048
     Dates: start: 20120503, end: 20120504
  2. CELEBREX [Suspect]
     Indication: FIBROMYALGIA
     Dosage: |STRENGTH: 200 MG CAPSULE||FREQ: DAILY||ROUTE: ORAL|
     Route: 048
     Dates: start: 20120503, end: 20120504
  3. CELEBREX [Suspect]
     Indication: ARTHROPATHY
     Dosage: |STRENGTH: 200 MG CAPSULE||FREQ: DAILY||ROUTE: ORAL|
     Route: 048
     Dates: start: 20120503, end: 20120504

REACTIONS (9)
  - NAUSEA [None]
  - MUSCULOSKELETAL PAIN [None]
  - DIZZINESS [None]
  - INSOMNIA [None]
  - HAEMATOMA [None]
  - PAIN IN EXTREMITY [None]
  - PYREXIA [None]
  - RESTLESSNESS [None]
  - DRUG HYPERSENSITIVITY [None]
